FAERS Safety Report 26069296 (Version 1)
Quarter: 2025Q4

REPORT INFORMATION
  Report Type: Spontaneous
  Country: US (occurrence: None)
  Receive Date: 20251119
  Receipt Date: 20251119
  Transmission Date: 20260118
  Serious: Yes (Disabling, Other)
  Sender: FDA-CTU
  Company Number: None

PATIENT
  Age: 24 Year
  Sex: Male
  Weight: 97.65 kg

DRUGS (2)
  1. LEVAQUIN [Suspect]
     Active Substance: LEVOFLOXACIN
     Indication: Localised infection
     Dosage: OTHER QUANTITY : 1 TABLET(S);?
     Route: 048
     Dates: start: 20251109, end: 20251109
  2. LEVAQUIN [Suspect]
     Active Substance: LEVOFLOXACIN
     Indication: Splinter

REACTIONS (5)
  - Hypoaesthesia [None]
  - Paraesthesia [None]
  - Tendon pain [None]
  - Pain [None]
  - Decreased activity [None]

NARRATIVE: CASE EVENT DATE: 20251109
